FAERS Safety Report 17461411 (Version 1)
Quarter: 2020Q1

REPORT INFORMATION
  Report Type: Spontaneous
  Country: US (occurrence: US)
  Receive Date: 20200213
  Receipt Date: 20200213
  Transmission Date: 20200409
  Serious: Yes (Hospitalization)
  Sender: FDA-Public Use
  Company Number: None

PATIENT
  Age: 39 Year
  Sex: Female

DRUGS (10)
  1. METHYLPRED [Concomitant]
     Active Substance: METHYLPREDNISOLONE
  2. DOXYCYCL HYC [Concomitant]
  3. METOPROL SUC [Concomitant]
  4. AMITRIPTYLIN [Concomitant]
     Active Substance: AMITRIPTYLINE
  5. AMLODIPINE [Concomitant]
     Active Substance: AMLODIPINE BESYLATE
  6. COSENTYX [Suspect]
     Active Substance: SECUKINUMAB
     Indication: RHEUMATOID ARTHRITIS
     Dosage: ?          OTHER FREQUENCY:1 ML EVERY 28 DAYS;?
     Dates: start: 20190906
  7. JUNEL FE 1/20 [Concomitant]
     Active Substance: ETHINYL ESTRADIOL\NORETHINDRONE ACETATE
  8. CELECOXIB. [Concomitant]
     Active Substance: CELECOXIB
  9. ATORVASTATIN [Concomitant]
     Active Substance: ATORVASTATIN
  10. HUMIRA [Concomitant]
     Active Substance: ADALIMUMAB

REACTIONS (2)
  - Hypertension [None]
  - Knee arthroplasty [None]

NARRATIVE: CASE EVENT DATE: 20191212
